FAERS Safety Report 25685333 (Version 2)
Quarter: 2025Q4

REPORT INFORMATION
  Report Type: Report from Study
  Country: US (occurrence: US)
  Receive Date: 20250815
  Receipt Date: 20251031
  Transmission Date: 20260117
  Serious: Yes (Other)
  Sender: MALLINCKRODT
  Company Number: US-MALLINCKRODT-MNK202500275

PATIENT
  Sex: Female

DRUGS (3)
  1. CORTICOTROPIN [Suspect]
     Active Substance: CORTICOTROPIN
     Indication: Cyclitis
     Dosage: UNKNOWN
  2. HUMAN IMMUNOGLOBULIN G [Concomitant]
     Active Substance: HUMAN IMMUNOGLOBULIN G
     Dosage: UNKNOWN
  3. IMMUNE GLOBULIN NOS [Concomitant]
     Active Substance: IMMUNE GLOBULIN NOS
     Dosage: UNKNOWN

REACTIONS (6)
  - Retinitis [Unknown]
  - Retinal scar [Unknown]
  - Visual impairment [Not Recovered/Not Resolved]
  - Flushing [Not Recovered/Not Resolved]
  - Nasopharyngitis [Recovering/Resolving]
  - Drug ineffective [Unknown]
